FAERS Safety Report 8474919-9 (Version None)
Quarter: 2012Q2

REPORT INFORMATION
  Report Type: 
  Country: None (occurrence: None)
  Receive Date: 20120628
  Receipt Date: 20120618
  Transmission Date: 20120825
  Serious: Yes (Other)
  Sender: FDA-Public Use
  Company Number: US-JNJFOC-20120207711

PATIENT
  Sex: Male

DRUGS (2)
  1. REMICADE [Suspect]
     Route: 042
  2. REMICADE [Suspect]
     Indication: CROHN'S DISEASE
     Route: 042
     Dates: start: 20120101, end: 20120101

REACTIONS (5)
  - CHEST DISCOMFORT [None]
  - PANIC ATTACK [None]
  - HYPERSENSITIVITY [None]
  - DYSPNOEA [None]
  - INFUSION RELATED REACTION [None]
